FAERS Safety Report 9317969 (Version 1)
Quarter: 2013Q2

REPORT INFORMATION
  Report Type: Spontaneous
  Country: US (occurrence: US)
  Receive Date: 20130530
  Receipt Date: 20130530
  Transmission Date: 20140414
  Serious: No
  Sender: FDA-Public Use
  Company Number: US-GLAXOSMITHKLINE-A0998376A

PATIENT
  Age: 10 Year
  Sex: Male

DRUGS (3)
  1. VENTOLIN [Suspect]
     Indication: ASTHMA
     Dosage: 2PUFF AS REQUIRED
     Route: 055
     Dates: start: 201208
  2. SINGULAIR [Concomitant]
  3. FOCALIN [Concomitant]

REACTIONS (2)
  - Dyspnoea [Recovered/Resolved]
  - Presyncope [Recovered/Resolved]
